FAERS Safety Report 9313392 (Version 1)
Quarter: 2013Q2

REPORT INFORMATION
  Report Type: Spontaneous
  Country: US (occurrence: US)
  Receive Date: 20130528
  Receipt Date: 20130528
  Transmission Date: 20140414
  Serious: No
  Sender: FDA-Public Use
  Company Number: US-ABBOTT-13P-163-1086302-00

PATIENT
  Age: 64 Year
  Sex: Male
  Weight: 102.15 kg

DRUGS (1)
  1. ANDROGEL [Suspect]
     Indication: BLOOD TESTOSTERONE DECREASED
     Route: 061
     Dates: start: 201301, end: 201303

REACTIONS (2)
  - Hyperaesthesia [Not Recovered/Not Resolved]
  - Nipple swelling [Not Recovered/Not Resolved]
